FAERS Safety Report 5997141-4 (Version None)
Quarter: 2008Q4

REPORT INFORMATION
  Report Type: 
  Country: None (occurrence: None)
  Receive Date: 20081212
  Receipt Date: 20081104
  Transmission Date: 20090506
  Serious: No
  Sender: FDA-Public Use
  Company Number: US-ABBOTT-08P-163-0485487-00

PATIENT
  Sex: Female
  Weight: 74.002 kg

DRUGS (2)
  1. HUMIRA [Suspect]
     Indication: RHEUMATOID ARTHRITIS
     Route: 048
     Dates: start: 20040101
  2. VICODIN(HYDROCODONE AND ACETAMINOPHEN) [Concomitant]
     Indication: PAIN
     Route: 048
     Dates: start: 19990101

REACTIONS (2)
  - BREAST MASS [None]
  - RHINORRHOEA [None]
